FAERS Safety Report 7161561-5 (Version None)
Quarter: 2010Q4

REPORT INFORMATION
  Report Type: 
  Country: None (occurrence: None)
  Receive Date: 20101215
  Receipt Date: 20101210
  Transmission Date: 20110411
  Serious: Yes (Death)
  Sender: FDA-Public Use
  Company Number: PHHY2010JP84179

PATIENT
  Sex: Male
  Weight: 61 kg

DRUGS (5)
  1. DIOVAN [Suspect]
     Indication: HYPERTENSION
     Dosage: 80 MG, QD
     Route: 048
     Dates: start: 20090630, end: 20100902
  2. CONIEL [Concomitant]
     Indication: HYPERTENSION
     Dosage: 8 MG
     Route: 048
     Dates: start: 20090630, end: 20100902
  3. LASIX [Concomitant]
     Dosage: 80 MG
     Route: 048
     Dates: start: 20090630, end: 20100902
  4. BASEN [Concomitant]
     Dosage: 0.9 MG
     Route: 048
     Dates: start: 20090630, end: 20100902
  5. TAKEPRON [Concomitant]
     Dosage: 15 MG
     Route: 048
     Dates: start: 20090630, end: 20100902

REACTIONS (2)
  - CARDIAC FAILURE [None]
  - PNEUMONIA [None]
